FAERS Safety Report 14675938 (Version 1)
Quarter: 2018Q1

REPORT INFORMATION
  Report Type: Spontaneous
  Country: US (occurrence: US)
  Receive Date: 20180323
  Receipt Date: 20180323
  Transmission Date: 20180509
  Serious: No
  Sender: FDA-Public Use
  Company Number: US-PERRIGO-17US002703

PATIENT
  Age: 52 Year
  Sex: Female
  Weight: 83.9 kg

DRUGS (2)
  1. ANTIMIGRAINE PREPARATIONS [Concomitant]
     Active Substance: UNSPECIFIED INGREDIENT
     Indication: MIGRAINE
     Dosage: UNK
     Route: 065
  2. FAMOTIDINE, CALCIUM CARBONATE, AND MAGNESIUM HYDROXIDE [Suspect]
     Active Substance: CALCIUM CARBONATE\FAMOTIDINE\MAGNESIUM HYDROXIDE
     Indication: DYSPEPSIA
     Dosage: 1 TABLET, TWICE
     Route: 048
     Dates: start: 20170321, end: 20170321

REACTIONS (1)
  - Migraine [Recovering/Resolving]

NARRATIVE: CASE EVENT DATE: 20170321
